FAERS Safety Report 4444772-9 (Version None)
Quarter: 2004Q3

REPORT INFORMATION
  Report Type: 
  Country: None (occurrence: None)
  Receive Date: 20040903
  Receipt Date: 20040824
  Transmission Date: 20050211
  Serious: Yes (Other)
  Sender: FDA-Public Use
  Company Number: 2004059068

PATIENT
  Sex: Female

DRUGS (2)
  1. DILANTIN [Suspect]
     Indication: ILL-DEFINED DISORDER
  2. TEMOZOLOMIDE (TEMOZOLOMIDE) [Suspect]
     Indication: BRAIN NEOPLASM
     Dosage: ORAL
     Route: 048

REACTIONS (2)
  - BRAIN NEOPLASM [None]
  - RASH [None]
